FAERS Safety Report 18048925 (Version 1)
Quarter: 2020Q3

REPORT INFORMATION
  Report Type: Report from Study
  Country: None (occurrence: BR)
  Receive Date: 20200721
  Receipt Date: 20200721
  Transmission Date: 20201103
  Serious: Yes (Hospitalization)
  Sender: FDA-Public Use
  Company Number: BR-ABBVIE-20P-020-3490530-00

PATIENT
  Age: 66 Year
  Sex: Female

DRUGS (2)
  1. SYNTHROID [Suspect]
     Active Substance: LEVOTHYROXINE SODIUM
     Indication: HYPOTHYROIDISM
     Dosage: BELIEVES IT IS 1 TABLET PER DAY FOR 6 DAYS OF THE WEEK
     Route: 048
  2. THYMOMODULIN [Concomitant]
     Indication: IMMUNE SYSTEM DISORDER

REACTIONS (8)
  - Glaucoma [Not Recovered/Not Resolved]
  - Eye disorder [Unknown]
  - Abdominal pain [Unknown]
  - Malaise [Unknown]
  - Abdominal pain upper [Unknown]
  - Weight decreased [Unknown]
  - Diabetes mellitus [Not Recovered/Not Resolved]
  - Apathy [Unknown]

NARRATIVE: CASE EVENT DATE: 2010
